FAERS Safety Report 9865100 (Version 1)
Quarter: 2014Q1

REPORT INFORMATION
  Report Type: Spontaneous
  Country: US (occurrence: US)
  Receive Date: 20140203
  Receipt Date: 20140203
  Transmission Date: 20141002
  Serious: No
  Sender: FDA-Public Use
  Company Number: US-009507513-1402USA000762

PATIENT
  Age: 27 Year
  Sex: Female

DRUGS (10)
  1. CLARITIN-D-12 [Suspect]
     Indication: SINUS CONGESTION
     Dosage: UNK, UNKNOWN
     Route: 048
  2. CLARITIN-D-12 [Suspect]
     Indication: SINUS HEADACHE
  3. CLARITIN-D-12 [Suspect]
     Indication: NASAL CONGESTION
  4. CLARITIN-D-12 [Suspect]
     Indication: SNEEZING
  5. CLARITIN-D-12 [Suspect]
     Indication: LACRIMATION INCREASED
  6. CLARITIN-D-12 [Suspect]
     Indication: EYE PRURITUS
  7. CLARITIN-D-12 [Suspect]
     Indication: THROAT IRRITATION
  8. CLARITIN-D-12 [Suspect]
     Indication: RHINORRHOEA
  9. CLARITIN-D-12 [Suspect]
     Indication: HYPERSENSITIVITY
  10. CLARITIN-D-12 [Suspect]
     Indication: NASOPHARYNGITIS

REACTIONS (1)
  - Drug effect decreased [Unknown]
